FAERS Safety Report 5842028-0 (Version None)
Quarter: 2008Q3

REPORT INFORMATION
  Report Type: 
  Country: None (occurrence: None)
  Receive Date: 20080811
  Receipt Date: 20080811
  Transmission Date: 20090109
  Serious: Yes (Hospitalization)
  Sender: FDA-Public Use
  Company Number: None

PATIENT
  Sex: Female
  Weight: 127.0072 kg

DRUGS (4)
  1. VIOXX [Suspect]
     Indication: BACK PAIN
     Dates: start: 20020601, end: 20020801
  2. VIOXX [Suspect]
     Indication: PAIN IN EXTREMITY
     Dates: start: 20020601, end: 20020801
  3. BEXTRA [Suspect]
     Indication: BACK PAIN
     Dates: start: 20020801, end: 20031001
  4. BEXTRA [Suspect]
     Indication: PAIN IN EXTREMITY
     Dates: start: 20020801, end: 20031001

REACTIONS (12)
  - APPARENT DEATH [None]
  - BACK PAIN [None]
  - DEATH OF RELATIVE [None]
  - DEPRESSED MOOD [None]
  - FEELING ABNORMAL [None]
  - HYPERSOMNIA [None]
  - IATROGENIC INJURY [None]
  - ILL-DEFINED DISORDER [None]
  - PALPITATIONS [None]
  - PULMONARY EMBOLISM [None]
  - ROTATOR CUFF SYNDROME [None]
  - THROMBOSIS [None]
